FAERS Safety Report 5008853-3 (Version None)
Quarter: 2006Q2

REPORT INFORMATION
  Report Type: 
  Country: None (occurrence: None)
  Receive Date: 20060518
  Receipt Date: 20060510
  Transmission Date: 20061013
  Serious: Yes (Hospitalization)
  Sender: FDA-Public Use
  Company Number: CAR_0066_2006

PATIENT
  Age: 65 Year
  Sex: Female

DRUGS (5)
  1. DICLOFENAC POTASSIUM [Suspect]
     Dosage: 50 MG TID
  2. HYDROCORTISONE [Concomitant]
  3. RANITIDINE [Concomitant]
  4. FOLIC ACID [Concomitant]
  5. METHOTREXATE [Concomitant]

REACTIONS (5)
  - ABDOMINAL SEPSIS [None]
  - ARTHRITIS BACTERIAL [None]
  - COLONIC STENOSIS [None]
  - LARGE INTESTINE PERFORATION [None]
  - PNEUMOPERITONEUM [None]
